FAERS Safety Report 13130670 (Version 1)
Quarter: 2017Q1

REPORT INFORMATION
  Report Type: Spontaneous
  Country: US (occurrence: US)
  Receive Date: 20170119
  Receipt Date: 20170119
  Transmission Date: 20170428
  Serious: Yes (Other)
  Sender: FDA-Public Use
  Company Number: US-ELI_LILLY_AND_COMPANY-US201701004701

PATIENT
  Sex: Female

DRUGS (3)
  1. ALOXI [Concomitant]
     Active Substance: PALONOSETRON HYDROCHLORIDE
  2. EMEND [Concomitant]
     Active Substance: APREPITANT
  3. LARTRUVO [Suspect]
     Active Substance: OLARATUMAB
     Indication: UTERINE LEIOMYOSARCOMA
     Dosage: 1160 MG, UNKNOWN
     Route: 042
     Dates: start: 20170111, end: 20170111

REACTIONS (1)
  - Dizziness [Recovered/Resolved]
